FAERS Safety Report 26115685 (Version 1)
Quarter: 2025Q4

REPORT INFORMATION
  Report Type: Report from Study
  Country: US (occurrence: US)
  Receive Date: 20251203
  Receipt Date: 20251203
  Transmission Date: 20260118
  Serious: No
  Sender: ACADIA PHARMACEUTICALS
  Company Number: US-ACADIA PHARMACEUTICALS INC.-ACA-2025-PIM-012801

PATIENT
  Age: 79 Year
  Sex: Female

DRUGS (4)
  1. NUPLAZID [Suspect]
     Active Substance: PIMAVANSERIN TARTRATE
     Indication: Psychotic disorder due to a general medical condition
     Dosage: 34 MILLIGRAM, QD
     Route: 048
     Dates: start: 202502
  2. NUPLAZID [Suspect]
     Active Substance: PIMAVANSERIN TARTRATE
     Indication: Hallucination
  3. SEROQUEL [Concomitant]
     Active Substance: QUETIAPINE FUMARATE
  4. ENTACAPONE [Concomitant]
     Active Substance: ENTACAPONE

REACTIONS (2)
  - Illusion [Unknown]
  - Product use in unapproved indication [Unknown]

NARRATIVE: CASE EVENT DATE: 20250201
